FAERS Safety Report 5280922-2 (Version None)
Quarter: 2007Q1

REPORT INFORMATION
  Report Type: 
  Country: None (occurrence: None)
  Receive Date: 20070329
  Receipt Date: 20070316
  Transmission Date: 20070707
  Serious: Yes (Other)
  Sender: FDA-Public Use
  Company Number: US-ELI_LILLY_AND_COMPANY-US200703003732

PATIENT
  Age: 76 Year
  Sex: Female

DRUGS (1)
  1. FORTEO [Suspect]
     Indication: OSTEOPOROSIS
     Dosage: UNK, DAILY (1/D)
     Dates: start: 20061015, end: 20070228

REACTIONS (4)
  - ANAEMIA [None]
  - BLOOD CALCIUM INCREASED [None]
  - BLOOD URIC ACID INCREASED [None]
  - RENAL IMPAIRMENT [None]
